FAERS Safety Report 4818835-X (Version None)
Quarter: 2005Q4

REPORT INFORMATION
  Report Type: 
  Country: None (occurrence: None)
  Receive Date: 20051101
  Receipt Date: 20051018
  Transmission Date: 20060501
  Serious: Yes (Death)
  Sender: FDA-Public Use
  Company Number: 2005S1010221

PATIENT
  Age: 42 Year
  Sex: Male
  Weight: 145.151 kg

DRUGS (5)
  1. FENTANYL TRANSDERMAL SYSTEM [Suspect]
     Indication: HEPATIC NEOPLASM MALIGNANT
     Dosage: 100 MCG/HR; Q3D; TRANS
     Route: 062
     Dates: start: 20050815
  2. FENTANYL TRANSDERMAL SYSTEM [Suspect]
  3. FENTANYL [Suspect]
     Indication: HEPATIC NEOPLASM MALIGNANT
     Dosage: 50 MCG/HR; Q3D
  4. HYDROMORPHONE HYDROCHLORIDE [Concomitant]
  5. ... [Concomitant]

REACTIONS (2)
  - GENERAL PHYSICAL HEALTH DETERIORATION [None]
  - INADEQUATE ANALGESIA [None]
